FAERS Safety Report 13869852 (Version 1)
Quarter: 2017Q3

REPORT INFORMATION
  Report Type: Report from Study
  Country: US (occurrence: US)
  Receive Date: 20170815
  Receipt Date: 20170815
  Transmission Date: 20171127
  Serious: Yes (Hospitalization, Other)
  Sender: FDA-Public Use
  Company Number: US-PFIZER INC-2017074954

PATIENT
  Age: 71 Year
  Sex: Female

DRUGS (6)
  1. AMITRIPTYLINE [Concomitant]
     Active Substance: AMITRIPTYLINE
     Dosage: 25 MG, AS NEEDED
  2. SUTENT [Suspect]
     Active Substance: SUNITINIB MALATE
     Indication: METASTATIC RENAL CELL CARCINOMA
     Dosage: 50 MG, CYCLIC (DAILY FOR 21 DAYS (3 WEEKS) ON 7 DAYS OFF)
     Route: 048
     Dates: start: 20170203, end: 2017
  3. HYDROCODONE [Concomitant]
     Active Substance: HYDROCODONE
     Dosage: 10/325 AS NEEDED
     Dates: start: 2012
  4. SUTENT [Suspect]
     Active Substance: SUNITINIB MALATE
     Dosage: 50 MG, DAILY
     Route: 048
     Dates: start: 20170215
  5. SUTENT [Suspect]
     Active Substance: SUNITINIB MALATE
     Dosage: 50 MG, CYCLIC (DAILY, 3 WEEKS ON/1 WEEK OFF)
     Dates: start: 20170424
  6. ALPRAZOLAM. [Concomitant]
     Active Substance: ALPRAZOLAM
     Dosage: 0.5 AS NEEDED
     Dates: start: 2015

REACTIONS (26)
  - Weight increased [Unknown]
  - Urine output decreased [Unknown]
  - Decreased appetite [Unknown]
  - Pharyngeal inflammation [Recovered/Resolved]
  - Mouth haemorrhage [Unknown]
  - Pyrexia [Unknown]
  - Diarrhoea [Unknown]
  - Fatigue [Not Recovered/Not Resolved]
  - Flatulence [Not Recovered/Not Resolved]
  - Gingival discomfort [Unknown]
  - Abdominal discomfort [Not Recovered/Not Resolved]
  - Gastrooesophageal reflux disease [Not Recovered/Not Resolved]
  - Oropharyngeal pain [Recovered/Resolved]
  - Hypertension [Unknown]
  - Nausea [Not Recovered/Not Resolved]
  - Chills [Unknown]
  - Swelling [Unknown]
  - Eye haemorrhage [Unknown]
  - Drug dose omission [Unknown]
  - Diarrhoea haemorrhagic [Unknown]
  - Asthenia [Unknown]
  - Haematochezia [Unknown]
  - Epistaxis [Unknown]
  - Fluid retention [Not Recovered/Not Resolved]
  - International normalised ratio abnormal [Unknown]
  - Vomiting [Not Recovered/Not Resolved]

NARRATIVE: CASE EVENT DATE: 2017
